FAERS Safety Report 22679376 (Version 3)
Quarter: 2024Q1

REPORT INFORMATION
  Report Type: Spontaneous
  Country: CA (occurrence: None)
  Receive Date: 20230707
  Receipt Date: 20240326
  Transmission Date: 20240410
  Serious: Yes (Other)
  Sender: FDA-Public Use
  Company Number: CA-PFIZER INC-202300237584

PATIENT
  Age: 52 Year
  Sex: Female
  Weight: 73.48 kg

DRUGS (10)
  1. METHOTREXATE [Suspect]
     Active Substance: METHOTREXATE
     Indication: Ankylosing spondylitis
     Dates: start: 2020
  2. METHOTREXATE [Suspect]
     Active Substance: METHOTREXATE
  3. ADALIMUMAB [Concomitant]
     Active Substance: ADALIMUMAB\ISOPROPYL ALCOHOL
     Dates: start: 2020
  4. CIMZIA [Concomitant]
     Active Substance: CERTOLIZUMAB PEGOL
     Dates: start: 2020
  5. HUMIRA [Concomitant]
     Active Substance: ADALIMUMAB
     Dates: start: 2020
  6. RINVOQ [Concomitant]
     Active Substance: UPADACITINIB
     Dates: start: 2020
  7. STELARA [Concomitant]
     Active Substance: USTEKINUMAB
     Dates: start: 2020
  8. INFLECTRA [Concomitant]
     Active Substance: INFLIXIMAB-DYYB
     Indication: Ankylosing spondylitis
     Dosage: W 0, 2, 6 WEEKS THEN EVERY 6 WEEKS
     Dates: start: 20230719, end: 20240123
  9. INFLECTRA [Concomitant]
     Active Substance: INFLIXIMAB-DYYB
     Dates: start: 20240220, end: 2024
  10. INFLECTRA [Concomitant]
     Active Substance: INFLIXIMAB-DYYB
     Dosage: (365 MG 4 WEEKS)
     Dates: start: 20240319

REACTIONS (11)
  - Loss of personal independence in daily activities [Unknown]
  - Ankylosing spondylitis [Recovering/Resolving]
  - Crohn^s disease [Recovering/Resolving]
  - Drug ineffective for unapproved indication [Unknown]
  - Product use in unapproved indication [Unknown]
  - Lacrimation increased [Not Recovered/Not Resolved]
  - Dry eye [Not Recovered/Not Resolved]
  - Fatigue [Not Recovered/Not Resolved]
  - Asthenia [Not Recovered/Not Resolved]
  - Psoriasis [Not Recovered/Not Resolved]
  - Drug intolerance [Unknown]

NARRATIVE: CASE EVENT DATE: 20200101
